FAERS Safety Report 8302780-1 (Version None)
Quarter: 2012Q2

REPORT INFORMATION
  Report Type: 
  Country: None (occurrence: None)
  Receive Date: 20120420
  Receipt Date: 20110425
  Transmission Date: 20120825
  Serious: No
  Sender: FDA-Public Use
  Company Number: US-PFIZER INC-K201100545

PATIENT

DRUGS (1)
  1. AVINZA [Suspect]
     Dosage: UNK

REACTIONS (1)
  - DRUG SCREEN NEGATIVE [None]
